FAERS Safety Report 17263594 (Version 1)
Quarter: 2020Q1

REPORT INFORMATION
  Report Type: Spontaneous
  Country: IN (occurrence: IN)
  Receive Date: 20200113
  Receipt Date: 20200113
  Transmission Date: 20200409
  Serious: Yes (Other)
  Sender: FDA-Public Use
  Company Number: IN-009507513-2001IND001909

PATIENT
  Age: 24 Year
  Sex: Female
  Weight: 27.5 kg

DRUGS (12)
  1. DELAMANID [Suspect]
     Active Substance: DELAMANID
     Indication: PULMONARY TUBERCULOSIS
     Dosage: 200 MILLIGRAM, QD
     Route: 048
     Dates: start: 20191111
  2. BEDAQUILINE [Suspect]
     Active Substance: BEDAQUILINE
     Indication: PULMONARY TUBERCULOSIS
     Dosage: 200 MILLIGRAM, TIW
     Route: 048
     Dates: start: 20190829
  3. OMEPRAZOLE. [Concomitant]
     Active Substance: OMEPRAZOLE
     Dosage: UNK
     Dates: start: 20191111
  4. FERROUS SULFATE (+) FOLIC ACID [Concomitant]
     Indication: IRON DEFICIENCY ANAEMIA
     Dosage: UNK
     Dates: start: 20191111
  5. CLOFAZIMINE [Suspect]
     Active Substance: CLOFAZIMINE
     Indication: PULMONARY TUBERCULOSIS
     Dosage: 200 MILLIGRAM, QD
     Route: 065
     Dates: start: 20190829
  6. LINEZOLID. [Suspect]
     Active Substance: LINEZOLID
     Indication: PULMONARY TUBERCULOSIS
     Dosage: 600 MILLIGRAM, QD
     Route: 065
     Dates: start: 20190829
  7. AMOXICLAV [Suspect]
     Active Substance: AMOXICILLIN\CLAVULANATE POTASSIUM
     Indication: PULMONARY TUBERCULOSIS
     Dosage: 625 MILLIGRAM, BID
     Route: 065
     Dates: start: 20191111
  8. ONDANSETRON [Concomitant]
     Active Substance: ONDANSETRON
     Indication: ANTIEMETIC SUPPORTIVE CARE
     Dosage: UNK
     Dates: start: 20191111
  9. IMIPENEM AND CILASTATIN [Suspect]
     Active Substance: CILASTATIN SODIUM\IMIPENEM
     Indication: PULMONARY TUBERCULOSIS
     Dosage: 1 GRAM, BID
     Route: 065
     Dates: start: 20191111
  10. MOXIFLOXACIN. [Suspect]
     Active Substance: MOXIFLOXACIN
     Indication: PULMONARY TUBERCULOSIS
     Dosage: 600 MILLIGRAM, QD
     Route: 048
     Dates: start: 20190829
  11. METOCLOPRAMIDE. [Concomitant]
     Active Substance: METOCLOPRAMIDE
     Indication: ANTIEMETIC SUPPORTIVE CARE
     Dosage: UNK
     Dates: start: 20191111
  12. PYRIDOXINE [Concomitant]
     Active Substance: PYRIDOXINE
     Indication: NEUROPATHY PERIPHERAL
     Dosage: UNK
     Dates: start: 20191111

REACTIONS (3)
  - Dyspnoea [Unknown]
  - Cough [Unknown]
  - Chest pain [Unknown]

NARRATIVE: CASE EVENT DATE: 20191214
